FAERS Safety Report 18888697 (Version 1)
Quarter: 2021Q1

REPORT INFORMATION
  Report Type: Spontaneous
  Country: US (occurrence: US)
  Receive Date: 20210212
  Receipt Date: 20210212
  Transmission Date: 20210420
  Serious: Yes (Death, Other)
  Sender: FDA-Public Use
  Company Number: US-MYLANLABS-2021M1006718

PATIENT
  Age: 53 Year
  Sex: Male
  Weight: 103.87 kg

DRUGS (7)
  1. SIMVASTATIN. [Concomitant]
     Active Substance: SIMVASTATIN
     Indication: BLOOD CHOLESTEROL ABNORMAL
     Dosage: 40 MILLIGRAM, QD
     Dates: start: 20080228, end: 20180312
  2. VALSARTAN. [Suspect]
     Active Substance: VALSARTAN
     Indication: HYPERTENSION
     Dosage: 160 MILLIGRAM
     Dates: start: 20160208, end: 20160521
  3. VALSARTAN. [Suspect]
     Active Substance: VALSARTAN
     Dosage: 160 MILLIGRAM
     Dates: start: 20160116, end: 20160717
  4. VALSARTAN. [Suspect]
     Active Substance: VALSARTAN
     Indication: HYPERTENSION
     Dosage: 160 MILLIGRAM
     Dates: start: 20160514, end: 20160613
  5. VALSARTAN. [Suspect]
     Active Substance: VALSARTAN
     Dosage: 160 MILLIGRAM
     Dates: start: 20161121
  6. VALSARTAN. [Suspect]
     Active Substance: VALSARTAN
     Dosage: 160 MILLIGRAM
     Dates: start: 20161024, end: 20161123
  7. ALLOPURINOL. [Concomitant]
     Active Substance: ALLOPURINOL
     Indication: GOUT
     Dosage: 100 MILLIGRAM, QD
     Dates: start: 20040120, end: 20180515

REACTIONS (3)
  - Hepatic cancer metastatic [Unknown]
  - Neuroendocrine carcinoma metastatic [Fatal]
  - Metastatic gastric cancer [Unknown]

NARRATIVE: CASE EVENT DATE: 20180611
